FAERS Safety Report 7460188-5 (Version None)
Quarter: 2011Q2

REPORT INFORMATION
  Report Type: 
  Country: None (occurrence: None)
  Receive Date: 20110505
  Receipt Date: 20110425
  Transmission Date: 20111010
  Serious: Yes (Life-Threatening, Other)
  Sender: FDA-Public Use
  Company Number: JP-JNJFOC-20110408314

PATIENT
  Sex: Male

DRUGS (12)
  1. DORIPENEM MONOHYDRATE [Suspect]
     Indication: PNEUMONIA
     Route: 041
  2. AMLODIPINE [Concomitant]
     Route: 048
  3. TERSIGAN [Suspect]
     Indication: BRONCHITIS
     Route: 055
  4. ANCARON [Concomitant]
     Route: 048
  5. RENIVACE [Concomitant]
     Route: 048
  6. HUMULIN 3/7 [Concomitant]
     Route: 048
  7. ASPIRIN [Concomitant]
     Route: 048
  8. MUCODYNE [Suspect]
     Indication: BRONCHITIS
     Route: 048
  9. ARTIST [Concomitant]
     Route: 048
  10. LUPRAC [Concomitant]
     Route: 048
  11. WARFARIN [Concomitant]
     Route: 048
  12. SIGMART [Concomitant]
     Route: 048

REACTIONS (3)
  - RESPIRATORY FAILURE [None]
  - HEPATIC ENZYME INCREASED [None]
  - CARDIAC FAILURE [None]
